FAERS Safety Report 12802254 (Version 1)
Quarter: 2016Q4

REPORT INFORMATION
  Report Type: Spontaneous
  Country: US (occurrence: US)
  Receive Date: 20161003
  Receipt Date: 20161003
  Transmission Date: 20170207
  Serious: No
  Sender: FDA-Public Use
  Company Number: US-JAZZ-2016-US-012439

PATIENT
  Sex: Female

DRUGS (27)
  1. NASONEX [Concomitant]
     Active Substance: MOMETASONE FUROATE
  2. VALIUM [Concomitant]
     Active Substance: DIAZEPAM
  3. ZOLOFT [Concomitant]
     Active Substance: SERTRALINE HYDROCHLORIDE
  4. CIPRO [Concomitant]
     Active Substance: CIPROFLOXACIN HYDROCHLORIDE
  5. DIABETIC DERM [Concomitant]
  6. GAS RELIEF [Concomitant]
     Active Substance: DIMETHICONE
  7. COMBIPATCH [Concomitant]
     Active Substance: ESTRADIOL\NORETHINDRONE ACETATE
  8. EFFEXOR [Concomitant]
     Active Substance: VENLAFAXINE HYDROCHLORIDE
  9. ATENOLOL. [Concomitant]
     Active Substance: ATENOLOL
  10. DEXTROAMPHET SACCHARAT, AMPHET ASPARTATE, DEXTROAMPHET SULFATE AND AMPHET SULFAT [Concomitant]
     Active Substance: AMPHETAMINE ASPARTATE\AMPHETAMINE SULFATE\DEXTROAMPHETAMINE SACCHARATE\DEXTROAMPHETAMINE SULFATE
  11. AMBIEN [Concomitant]
     Active Substance: ZOLPIDEM TARTRATE
  12. XYREM [Suspect]
     Active Substance: SODIUM OXYBATE
     Indication: NARCOLEPSY
     Dosage: 2.25 G, BID
     Route: 048
     Dates: start: 200603, end: 200605
  13. AXID [Concomitant]
     Active Substance: NIZATIDINE
  14. ADDERALL [Concomitant]
     Active Substance: AMPHETAMINE ASPARTATE\AMPHETAMINE SULFATE\DEXTROAMPHETAMINE SACCHARATE\DEXTROAMPHETAMINE SULFATE
  15. ABILIFY [Concomitant]
     Active Substance: ARIPIPRAZOLE
  16. PRILOSEC [Concomitant]
     Active Substance: OMEPRAZOLE MAGNESIUM
  17. MENS ROGAINE [Concomitant]
     Active Substance: MINOXIDIL
  18. TINIDAZOLE. [Concomitant]
     Active Substance: TINIDAZOLE
  19. XYREM [Suspect]
     Active Substance: SODIUM OXYBATE
     Dosage: 6 G, BID
     Route: 048
     Dates: start: 201603
  20. ENALAPRIL MALEATE. [Concomitant]
     Active Substance: ENALAPRIL MALEATE
  21. CORICIDIN HBP CHEST CONGESTION + COUGH [Concomitant]
  22. WELLBUTRIN [Concomitant]
     Active Substance: BUPROPION HYDROCHLORIDE
  23. XYREM [Suspect]
     Active Substance: SODIUM OXYBATE
     Dosage: DOSE ADJUSTMENTS
     Route: 048
     Dates: start: 200605, end: 201603
  24. AMBIEN [Concomitant]
     Active Substance: ZOLPIDEM TARTRATE
  25. SAPHRIS [Concomitant]
     Active Substance: ASENAPINE MALEATE
  26. STAY AWAKE [Concomitant]
     Active Substance: CAFFEINE
  27. WOMENS COMPLETE MULTIVITAMINS [Concomitant]

REACTIONS (1)
  - Headache [Not Recovered/Not Resolved]
